FAERS Safety Report 4846030-7 (Version None)
Quarter: 2005Q4

REPORT INFORMATION
  Report Type: 
  Country: None (occurrence: None)
  Receive Date: 20051130
  Receipt Date: 20051121
  Transmission Date: 20060501
  Serious: Yes (Other)
  Sender: FDA-Public Use
  Company Number: 2005-11-1347

PATIENT
  Sex: Female

DRUGS (10)
  1. ASMANEX TWISTHALER [Suspect]
     Indication: ASTHMA
     Dosage: INHALATION
     Route: 055
     Dates: start: 20051001, end: 20051117
  2. XOPENEX [Suspect]
     Dosage: QID INHALATION
     Route: 055
  3. CARDIZEM [Suspect]
     Dosage: ORAL
     Route: 048
  4. COUMADIN [Suspect]
     Dosage: ORAL
     Route: 048
  5. MUCINEX [Suspect]
     Dosage: ORAL
     Route: 048
  6. AVALIDE [Suspect]
     Dosage: ORAL
     Route: 048
  7. ZANTAC [Suspect]
     Dosage: ORAL
     Route: 048
  8. MAXAIR [Suspect]
     Dosage: PRN ORAL AER INH
     Route: 055
  9. FISH OIL [Suspect]
  10. MULTIVITAMIN TABLETS [Concomitant]

REACTIONS (6)
  - ASTHMA [None]
  - ATRIAL FIBRILLATION [None]
  - CONDITION AGGRAVATED [None]
  - FEELING ABNORMAL [None]
  - NERVOUSNESS [None]
  - TREMOR [None]
